FAERS Safety Report 7613936 (Version 2)
Quarter: 2012Q4

REPORT INFORMATION
  Report Type: 
  Country: US (occurrence: US)
  Receive Date: 20101001
  Receipt Date: 20121017
  Transmission Date: 20130627
  Serious: Yes (Other)
  Sender: FDA-Public Use
  Company Number: US-JNJFOC-20100906539

PATIENT
  Age: 56 None
  Sex: Female
  Weight: 55.34 kg

DRUGS (1)
  1. REMICADE [Suspect]
     Indication: COLITIS ULCERATIVE
     Route: 042
     Dates: start: 20090901, end: 20100512

REACTIONS (1)
  - Lupus-like syndrome [Unknown]
